FAERS Safety Report 5643504-6 (Version None)
Quarter: 2008Q1

REPORT INFORMATION
  Report Type: 
  Country: None (occurrence: None)
  Receive Date: 20080228
  Receipt Date: 20080221
  Transmission Date: 20080703
  Serious: Yes (Death)
  Sender: FDA-Public Use
  Company Number: GB-BOEHRINGER INGELHEIM GMBH, GERMANY-2008-DE-01200GD

PATIENT
  Sex: Male

DRUGS (4)
  1. NEVIRAPINE [Suspect]
     Indication: HIV TEST POSITIVE
  2. STAVUDINE [Suspect]
     Indication: HIV TEST POSITIVE
  3. INDINIVIR SULFATE [Suspect]
     Indication: HIV TEST POSITIVE
  4. RITONAVIR [Suspect]
     Indication: HIV TEST POSITIVE

REACTIONS (3)
  - MALIGNANT MELANOMA [None]
  - METASTASES TO LYMPH NODES [None]
  - METASTASES TO SKIN [None]
